FAERS Safety Report 4431127-6 (Version None)
Quarter: 2004Q3

REPORT INFORMATION
  Report Type: 
  Country: None (occurrence: None)
  Receive Date: 20040817
  Receipt Date: 20040804
  Transmission Date: 20050211
  Serious: Yes (Other)
  Sender: FDA-Public Use
  Company Number: 2004053578

PATIENT
  Age: 56 Year
  Sex: Male
  Weight: 84 kg

DRUGS (3)
  1. ATORVASTATIN (ATORVASTATIN) [Suspect]
     Indication: BLOOD CHOLESTEROL INCREASED
     Dosage: 40 MG (40 MG, DAILY) INTERVAL:  EVERYDAY), ORAL
     Route: 048
     Dates: start: 20040714, end: 20040715
  2. ETHANOL (ETHANOL) [Suspect]
     Indication: ILL-DEFINED DISORDER
  3. ASPIRIN [Concomitant]

REACTIONS (2)
  - ALCOHOL INTERACTION [None]
  - HYPERSENSITIVITY [None]
